FAERS Safety Report 8347801-5 (Version None)
Quarter: 2012Q2

REPORT INFORMATION
  Report Type: 
  Country: None (occurrence: None)
  Receive Date: 20120509
  Receipt Date: 20120503
  Transmission Date: 20120825
  Serious: Yes (Other)
  Sender: FDA-Public Use
  Company Number: US-GLAXOSMITHKLINE-A0976270A

PATIENT
  Age: 54 Year
  Sex: Male

DRUGS (15)
  1. ALLEGRA [Suspect]
  2. ASTEPRO [Concomitant]
  3. FLOMAX [Concomitant]
  4. ADVAIR DISKUS 100/50 [Suspect]
     Indication: ASTHMA
     Dosage: 1PUFF TWICE PER DAY
     Route: 055
     Dates: start: 20030101
  5. BECONASE [Concomitant]
     Indication: PRODUCT USED FOR UNKNOWN INDICATION
     Route: 065
  6. SINGULAIR [Concomitant]
  7. HYDROCHLOROTHIAZIDE [Concomitant]
  8. NISTATIN [Concomitant]
  9. GRAPEFRUIT SEED EXTRACT [Concomitant]
  10. UNSPECIFIED MEDICATION [Concomitant]
  11. ALBUTEROL [Suspect]
     Indication: ASTHMA
     Route: 055
  12. ALBUTEROL [Concomitant]
  13. PROBIOTIC [Concomitant]
  14. ANTIFUNGAL [Suspect]
  15. FLOVENT [Suspect]
     Indication: ASTHMA
     Route: 065

REACTIONS (20)
  - ORAL CANDIDIASIS [None]
  - DENTAL PROSTHESIS USER [None]
  - OVERDOSE [None]
  - MEMORY IMPAIRMENT [None]
  - ABDOMINAL DISTENSION [None]
  - DRUG INEFFECTIVE [None]
  - SALIVARY HYPERSECRETION [None]
  - DEPRESSED LEVEL OF CONSCIOUSNESS [None]
  - DREAMY STATE [None]
  - DEMENTIA [None]
  - CONDITION AGGRAVATED [None]
  - MICTURITION DISORDER [None]
  - LIBIDO DECREASED [None]
  - SPERMATOZOA ABNORMAL [None]
  - BREATH ODOUR [None]
  - DRY MOUTH [None]
  - DENTAL CARIES [None]
  - CONSTIPATION [None]
  - DYSPNOEA [None]
  - ILL-DEFINED DISORDER [None]
